FAERS Safety Report 13249201 (Version 1)
Quarter: 2017Q1

REPORT INFORMATION
  Report Type: Spontaneous
  Country: US (occurrence: US)
  Receive Date: 20170218
  Receipt Date: 20170218
  Transmission Date: 20170428
  Serious: No
  Sender: FDA-Public Use
  Company Number: US-ALLERGAN-1654894US

PATIENT
  Age: 60 Year
  Sex: Male
  Weight: 108.84 kg

DRUGS (3)
  1. ASA [Concomitant]
     Active Substance: ASPIRIN
     Indication: HEADACHE
     Dosage: UNK
     Route: 048
  2. FISH OIL [Concomitant]
     Active Substance: FISH OIL
     Indication: BLOOD CHOLESTEROL INCREASED
     Dosage: UNK
     Route: 048
  3. RESTASIS [Suspect]
     Active Substance: CYCLOSPORINE
     Indication: DRY EYE
     Dosage: 2 GTT, Q12H
     Route: 047
     Dates: start: 201604

REACTIONS (2)
  - Ocular discomfort [Not Recovered/Not Resolved]
  - Dry eye [Not Recovered/Not Resolved]

NARRATIVE: CASE EVENT DATE: 20160423
